FAERS Safety Report 20751436 (Version 34)
Quarter: 2025Q4

REPORT INFORMATION
  Report Type: Spontaneous
  Country: US (occurrence: US)
  Receive Date: 20220426
  Receipt Date: 20251211
  Transmission Date: 20260118
  Serious: No
  Sender: PFIZER
  Company Number: US-PFIZER INC-2020510877

PATIENT
  Age: 67 Year
  Sex: Female
  Weight: 72.98 kg

DRUGS (2)
  1. IBRANCE [Suspect]
     Active Substance: PALBOCICLIB
     Indication: Breast cancer female
     Dosage: 100 MG, CYCLIC (1 TABLET DAILY WITH FOOD ON DAYS 8-28 OF THE CHEMO CYCLE)
     Route: 048
  2. IBRANCE [Suspect]
     Active Substance: PALBOCICLIB
     Dosage: 75 MG, CYCLIC (1 TABLET (75 MG TOTAL) DAILY WITH FOOD ON DAYS 8 THROUGH 28 OF CHEMOTHERAPY CYCLE)
     Route: 048

REACTIONS (3)
  - Neutrophil count abnormal [Unknown]
  - Blood test abnormal [Unknown]
  - Incorrect product administration duration [Unknown]
